FAERS Safety Report 6166706-1 (Version None)
Quarter: 2009Q2

REPORT INFORMATION
  Report Type: 
  Country: None (occurrence: None)
  Receive Date: 20090424
  Receipt Date: 20090320
  Transmission Date: 20091009
  Serious: Yes (Death, Life-Threatening, Hospitalization, Other)
  Sender: FDA-Public Use
  Company Number: FR-PFIZER INC-2008099577

PATIENT

DRUGS (2)
  1. BLINDED *PLACEBO [Suspect]
     Route: 048
     Dates: start: 20080313
  2. BLINDED EPLERENONE [Suspect]
     Route: 048
     Dates: start: 20080313

REACTIONS (9)
  - CARDIAC FAILURE [None]
  - CONDITION AGGRAVATED [None]
  - HEPATIC FUNCTION ABNORMAL [None]
  - HYPOXIA [None]
  - PERIPHERAL ISCHAEMIA [None]
  - PNEUMONIA [None]
  - RENAL IMPAIRMENT [None]
  - SEPTIC SHOCK [None]
  - THROMBOCYTOPENIA [None]
